FAERS Safety Report 23014230 (Version 2)
Quarter: 2023Q4

REPORT INFORMATION
  Report Type: Report from Study
  Country: US (occurrence: US)
  Receive Date: 20231002
  Receipt Date: 20231004
  Transmission Date: 20240109
  Serious: Yes (Other)
  Sender: FDA-Public Use
  Company Number: US-ABBVIE-5429889

PATIENT
  Sex: Male

DRUGS (2)
  1. SKYRIZI [Suspect]
     Active Substance: RISANKIZUMAB-RZAA
     Indication: Psoriasis
     Dosage: FORM STRENGTH: 150 MILLIGRAM?DOSE FORM: SOLUTION FOR INJECTION/INFUSION IN PRE-FILLED SYRINGE
     Route: 058
     Dates: start: 20230502, end: 20230731
  2. SKYRIZI [Suspect]
     Active Substance: RISANKIZUMAB-RZAA
     Dosage: FORM STRENGTH: 150 MILLIGRAM?DOSE FORM: SOLUTION FOR INJECTION/INFUSION IN PRE-FILLED SYRINGE
     Route: 058
     Dates: start: 20230926

REACTIONS (5)
  - Myocardial infarction [Recovering/Resolving]
  - Productive cough [Not Recovered/Not Resolved]
  - Arthralgia [Recovered/Resolved with Sequelae]
  - Heart valve operation [Unknown]
  - Arthralgia [Recovered/Resolved]

NARRATIVE: CASE EVENT DATE: 20230101
